FAERS Safety Report 6419971-7 (Version None)
Quarter: 2009Q4

REPORT INFORMATION
  Report Type: 
  Country: None (occurrence: None)
  Receive Date: 20091029
  Receipt Date: 20091021
  Transmission Date: 20100525
  Serious: Yes (Other)
  Sender: FDA-Public Use
  Company Number: AU-PFIZER INC-2009286082

PATIENT
  Age: 55 Year

DRUGS (4)
  1. NORVASC [Suspect]
     Dosage: 5 MG, 1X/DAY
     Dates: end: 20091019
  2. NORVASC [Suspect]
     Dosage: 10 MG, 1X/DAY
     Dates: end: 20091019
  3. ZYRTEC [Concomitant]
  4. PHENERGAN ^AVENTIS PHARMA^ [Concomitant]

REACTIONS (2)
  - BLISTER [None]
  - OEDEMA PERIPHERAL [None]
